FAERS Safety Report 20732294 (Version 2)
Quarter: 2022Q2

REPORT INFORMATION
  Report Type: Spontaneous
  Country: DE (occurrence: None)
  Receive Date: 20220420
  Receipt Date: 20220524
  Transmission Date: 20220720
  Serious: Yes (Death, Other)
  Sender: FDA-Public Use
  Company Number: DE-BRISTOL-MYERS SQUIBB COMPANY-2022-011657

PATIENT
  Age: 85 Year
  Sex: Female

DRUGS (4)
  1. CARBOPLATIN [Suspect]
     Active Substance: CARBOPLATIN
     Indication: HER2 mutant non-small cell lung cancer
     Route: 065
  2. PACLITAXEL [Suspect]
     Active Substance: PACLITAXEL
     Indication: Non-small cell lung cancer metastatic
     Route: 065
  3. IPILIMUMAB [Suspect]
     Active Substance: IPILIMUMAB
     Indication: Non-small cell lung cancer metastatic
     Dosage: DOSE : UNAVAILABLE; FREQ : UNAVAILABLE
     Route: 065
     Dates: start: 202102
  4. NIVOLUMAB [Suspect]
     Active Substance: NIVOLUMAB
     Indication: Non-small cell lung cancer metastatic
     Dosage: DOSE : UNAVAILABLE; FREQ : UNAVAILABLE
     Route: 065
     Dates: start: 202102

REACTIONS (4)
  - Death [Fatal]
  - Metastases to liver [Unknown]
  - Malignant neoplasm progression [Fatal]
  - Weight increased [Unknown]

NARRATIVE: CASE EVENT DATE: 20210301
